FAERS Safety Report 10387148 (Version 1)
Quarter: 2014Q3

REPORT INFORMATION
  Report Type: Spontaneous
  Country: CA (occurrence: CA)
  Receive Date: 20140815
  Receipt Date: 20140815
  Transmission Date: 20150326
  Serious: Yes (Death)
  Sender: FDA-Public Use
  Company Number: CA-PFIZER INC-2014226933

PATIENT
  Age: 54 Year
  Sex: Male
  Weight: 47 kg

DRUGS (5)
  1. GLYCERIN. [Suspect]
     Active Substance: GLYCERIN
     Dosage: 15 ML, 4X/DAY
  2. NYSTATIN ORAL SUSPENSION 100000UNIT/ML USP [Suspect]
     Active Substance: NYSTATIN
     Dosage: 15 ML, 4X/DAY
  3. HYDROCORTISONE. [Suspect]
     Active Substance: HYDROCORTISONE
     Dosage: 15 ML, 4X/DAY
  4. XYLOCAINE [Suspect]
     Active Substance: LIDOCAINE HYDROCHLORIDE
     Dosage: 15 ML, 4X/DAY
  5. NORMAL SALINE [Suspect]
     Active Substance: SODIUM CHLORIDE
     Dosage: 15 ML, 4X/DAY

REACTIONS (1)
  - Gastrointestinal haemorrhage [Fatal]
